FAERS Safety Report 9133645 (Version 1)
Quarter: 2013Q1

REPORT INFORMATION
  Report Type: Spontaneous
  Country: CA (occurrence: CA)
  Receive Date: 20130125
  Receipt Date: 20130125
  Transmission Date: 20140127
  Serious: Yes (Life-Threatening, Hospitalization)
  Sender: FDA-Public Use
  Company Number: CA-B.I. PHARMACEUTICALS,INC./RIDGEFIELD-2013-CN-00108CN

PATIENT
  Age: 59 Year
  Sex: Female

DRUGS (3)
  1. PRADAX [Suspect]
     Dosage: 300 MG
     Route: 048
  2. ASA [Concomitant]
  3. MYLAN-METOPROLOL (TYPE L) [Concomitant]

REACTIONS (3)
  - Hemiparesis [Unknown]
  - Hemisensory neglect [Unknown]
  - Ischaemic stroke [Unknown]
